FAERS Safety Report 7253272-2 (Version None)
Quarter: 2011Q1

REPORT INFORMATION
  Report Type: 
  Country: None (occurrence: None)
  Receive Date: 20110129
  Receipt Date: 20100216
  Transmission Date: 20110831
  Serious: Yes (Other)
  Sender: FDA-Public Use
  Company Number: US-ABBOTT-10P-163-0626634-00

PATIENT
  Sex: Male
  Weight: 158.9 kg

DRUGS (4)
  1. DIOVAN [Concomitant]
     Indication: HYPERTENSION
  2. HUMIRA [Suspect]
     Indication: PSORIASIS
     Route: 058
     Dates: start: 20070101, end: 20090101
  3. HUMIRA [Suspect]
     Route: 058
     Dates: start: 20100201, end: 20100215
  4. HUMIRA [Suspect]
     Indication: PSORIATIC ARTHROPATHY
     Route: 058
     Dates: start: 20090101, end: 20091001

REACTIONS (5)
  - SEPSIS [None]
  - ABASIA [None]
  - PNEUMONIA [None]
  - PSORIASIS [None]
  - INFLUENZA LIKE ILLNESS [None]
